FAERS Safety Report 12425449 (Version 1)
Quarter: 2016Q2

REPORT INFORMATION
  Report Type: Spontaneous
  Country: US (occurrence: US)
  Receive Date: 20160601
  Receipt Date: 20160601
  Transmission Date: 20160815
  Serious: No
  Sender: FDA-Public Use
  Company Number: US-BAYER-2016-107037

PATIENT
  Age: 71 Year
  Sex: Male
  Weight: 97.51 kg

DRUGS (2)
  1. MIRALAX [Suspect]
     Active Substance: POLYETHYLENE GLYCOL 3350
     Indication: COLONOSCOPY
     Dosage: TWO CAPFULS OF MIRALAX WITH 8 OUNCES OF LIQUID, 4 TIMES AND 2 CAPSULES WITH 8 OUNCES 3 TIMES
     Route: 048
     Dates: start: 20160531, end: 20160601
  2. DULCOLAX (DOCUSATE SODIUM) [Concomitant]
     Active Substance: DOCUSATE SODIUM
     Dosage: 4 DF, ONCE

REACTIONS (2)
  - Circumstance or information capable of leading to medication error [None]
  - Product use issue [None]

NARRATIVE: CASE EVENT DATE: 20160531
